FAERS Safety Report 17766357 (Version 2)
Quarter: 2020Q2

REPORT INFORMATION
  Report Type: Spontaneous
  Country: US (occurrence: US)
  Receive Date: 20200511
  Receipt Date: 20200520
  Transmission Date: 20200714
  Serious: No
  Sender: FDA-Public Use
  Company Number: US-HORIZON-PEN-0243-2020

PATIENT
  Age: 54 Year
  Sex: Male

DRUGS (1)
  1. PENNSAID [Suspect]
     Active Substance: DICLOFENAC SODIUM
     Indication: CARPAL TUNNEL SYNDROME
     Dosage: 1 PUMP 10 TIMES A DAY
     Route: 061
     Dates: end: 202004

REACTIONS (12)
  - Rash [Recovered/Resolved]
  - Arthralgia [Recovering/Resolving]
  - Swelling [Recovering/Resolving]
  - Off label use [Recovered/Resolved]
  - Inflammation [Recovering/Resolving]
  - Synovitis [Recovered/Resolved]
  - Intentional product misuse [Recovered/Resolved]
  - Oedema peripheral [Recovered/Resolved]
  - Depression [Unknown]
  - Pain in extremity [Recovering/Resolving]
  - Skin exfoliation [Recovering/Resolving]
  - Carpal tunnel decompression [Unknown]

NARRATIVE: CASE EVENT DATE: 20190117
